FAERS Safety Report 20257426 (Version 2)
Quarter: 2022Q1

REPORT INFORMATION
  Report Type: Spontaneous
  Country: US (occurrence: US)
  Receive Date: 20211230
  Receipt Date: 20220122
  Transmission Date: 20220423
  Serious: Yes (Hospitalization, Other)
  Sender: FDA-Public Use
  Company Number: US-NOVARTISPH-NVSC2021US297171

PATIENT
  Sex: Female

DRUGS (1)
  1. GILENYA [Suspect]
     Active Substance: FINGOLIMOD HYDROCHLORIDE
     Indication: Product used for unknown indication
     Dosage: UNK
     Route: 065

REACTIONS (9)
  - Pneumonia [Unknown]
  - Atrial fibrillation [Unknown]
  - Cardiac failure [Unknown]
  - Multiple sclerosis relapse [Unknown]
  - Fall [Unknown]
  - Gait disturbance [Unknown]
  - Cardiac disorder [Unknown]
  - Asthenia [Unknown]
  - Lymphocyte count decreased [Unknown]
